FAERS Safety Report 4376467-4 (Version None)
Quarter: 2004Q2

REPORT INFORMATION
  Report Type: 
  Country: None (occurrence: None)
  Receive Date: 20040608
  Receipt Date: 20040511
  Transmission Date: 20050107
  Serious: Yes (Hospitalization, Other)
  Sender: FDA-Public Use
  Company Number: 04-167-0092

PATIENT
  Age: 67 Year
  Sex: Male

DRUGS (1)
  1. DOXORUBICIN, UNKNOWN STRENGTH, BEN VENUE LABS [Suspect]
     Indication: HEPATIC NEOPLASM MALIGNANT
     Dosage: 60 MG/M2 IV EVERY 3 WKS
     Route: 042
     Dates: start: 20040121, end: 20040324

REACTIONS (3)
  - DYSPNOEA [None]
  - HEPATIC NEOPLASM MALIGNANT [None]
  - MALIGNANT NEOPLASM PROGRESSION [None]
